FAERS Safety Report 7687779-0 (Version None)
Quarter: 2011Q3

REPORT INFORMATION
  Report Type: 
  Country: None (occurrence: None)
  Receive Date: 20110817
  Receipt Date: 20110808
  Transmission Date: 20111222
  Serious: Yes (Hospitalization)
  Sender: FDA-Public Use
  Company Number: FR-US-EMD SERONO, INC.-7075881

PATIENT
  Sex: Male

DRUGS (2)
  1. NOVANTRONE [Suspect]
     Indication: ACUTE MYELOID LEUKAEMIA
     Route: 042
  2. CYTARABINE [Suspect]
     Indication: LEUKAEMIA
     Route: 042

REACTIONS (2)
  - SYSTEMIC INFLAMMATORY RESPONSE SYNDROME [None]
  - PYREXIA [None]
